FAERS Safety Report 8385699-X (Version None)
Quarter: 2012Q2

REPORT INFORMATION
  Report Type: 
  Country: None (occurrence: None)
  Receive Date: 20120523
  Receipt Date: 20120517
  Transmission Date: 20120825
  Serious: Yes (Death, Hospitalization)
  Sender: FDA-Public Use
  Company Number: IMP_05901_2012

PATIENT
  Age: 16 Year
  Sex: Female

DRUGS (2)
  1. CHLOROQUINE PHOSPHATE [Suspect]
     Indication: MALARIA
     Dosage: (DF)
  2. ANILINE DYE EXPOSURE [Suspect]
     Indication: ENVIRONMENTAL EXPOSURE
     Dosage: (DF)

REACTIONS (17)
  - PYREXIA [None]
  - HEADACHE [None]
  - HEART RATE INCREASED [None]
  - HEPATOMEGALY [None]
  - HAEMOLYSIS [None]
  - PO2 INCREASED [None]
  - HYPOXIA [None]
  - CEREBRAL ISCHAEMIA [None]
  - PULSE PRESSURE DECREASED [None]
  - BLOOD PRESSURE DIASTOLIC DECREASED [None]
  - RESPIRATORY RATE INCREASED [None]
  - ANAEMIA [None]
  - COMA [None]
  - WHITE BLOOD CELL COUNT INCREASED [None]
  - METHAEMOGLOBINAEMIA [None]
  - PCO2 DECREASED [None]
  - PUPIL FIXED [None]
